FAERS Safety Report 24654344 (Version 2)
Quarter: 2024Q4

REPORT INFORMATION
  Report Type: Report from Study
  Country: US (occurrence: US)
  Receive Date: 20241122
  Receipt Date: 20241122
  Transmission Date: 20250114
  Serious: Yes (Death, Hospitalization, Other)
  Sender: MERCK
  Company Number: US-009507513-2101USA009358

PATIENT
  Age: 77 Year
  Sex: Female

DRUGS (2)
  1. PREVYMIS [Suspect]
     Active Substance: LETERMOVIR
     Dosage: 480 MG 1/DAILY
     Route: 048
  2. PREVYMIS [Suspect]
     Active Substance: LETERMOVIR
     Dosage: UNKNOWN BY REPORTER
     Route: 048

REACTIONS (8)
  - Death [Fatal]
  - Hospitalisation [Recovered/Resolved]
  - Living in residential institution [Recovered/Resolved]
  - Product dose omission issue [Unknown]
  - Product distribution issue [Unknown]
  - Product dose omission issue [Unknown]
  - Product use issue [Unknown]
  - Product dose omission issue [Unknown]

NARRATIVE: CASE EVENT DATE: 20210114
